FAERS Safety Report 4379752-5 (Version None)
Quarter: 2004Q2

REPORT INFORMATION
  Report Type: 
  Country: None (occurrence: None)
  Receive Date: 20040617
  Receipt Date: 20040608
  Transmission Date: 20050107
  Serious: Yes (Life-Threatening, Hospitalization)
  Sender: FDA-Public Use
  Company Number: ES-GLAXOSMITHKLINE-B0335698A

PATIENT
  Age: 65 Year
  Sex: Male

DRUGS (1)
  1. AMOXICILLIN SODIUM + POTASSIUM CLAVULANATE [Suspect]
     Indication: RESPIRATORY DISORDER
     Route: 042
     Dates: start: 20031225, end: 20031231

REACTIONS (6)
  - ANAEMIA [None]
  - DYSPNOEA [None]
  - LUNG INFILTRATION [None]
  - OEDEMA [None]
  - PNEUMONITIS [None]
  - PYREXIA [None]
